FAERS Safety Report 6444272-0 (Version None)
Quarter: 2009Q4

REPORT INFORMATION
  Report Type: 
  Country: None (occurrence: None)
  Receive Date: 20091116
  Receipt Date: 20091116
  Transmission Date: 20100525
  Serious: Yes (Other)
  Sender: FDA-Public Use
  Company Number: None

PATIENT
  Age: 25 Year
  Sex: Female

DRUGS (2)
  1. KEPPRA [Suspect]
     Indication: EPILEPSY
     Dosage: 1500 MG BID PO
     Route: 048
  2. LAMICTAL [Suspect]
     Indication: EPILEPSY
     Dosage: 300 MG BID PO
     Route: 048

REACTIONS (3)
  - CONDITION AGGRAVATED [None]
  - CONVULSION [None]
  - PRODUCT SUBSTITUTION ISSUE [None]
